FAERS Safety Report 7473677-4 (Version None)
Quarter: 2011Q2

REPORT INFORMATION
  Report Type: 
  Country: None (occurrence: None)
  Receive Date: 20110511
  Receipt Date: 20101101
  Transmission Date: 20111010
  Serious: Yes (Hospitalization)
  Sender: FDA-Public Use
  Company Number: US-BAYER-201033516NA

PATIENT
  Age: 29 Year
  Sex: Female
  Weight: 58.957 kg

DRUGS (11)
  1. NSAID'S [Concomitant]
     Indication: PAIN
  2. LEVAQUIN [Concomitant]
     Dosage: 750 MG, UNK
  3. ACETAMINOPHEN AND HYDROCODONE BITARTRATE [Concomitant]
  4. YAZ [Suspect]
     Indication: CONTRACEPTION
     Dosage: UNK
     Dates: start: 20061001, end: 20070101
  5. YASMIN [Suspect]
     Indication: PREMENSTRUAL SYNDROME
     Dosage: UNK
     Dates: start: 20070101, end: 20080701
  6. ACIPHEX [Concomitant]
     Dosage: 20 MG, UNK
  7. NASACORT AQ [Concomitant]
  8. AZITHROMYCIN [Concomitant]
     Dosage: 250 MG, UNK
  9. YAZ [Suspect]
     Indication: PREMENSTRUAL SYNDROME
  10. YASMIN [Suspect]
     Indication: CONTRACEPTION
     Dosage: UNK
     Dates: start: 20030801, end: 20060601
  11. ASCORBIC ACID [Concomitant]
     Indication: PAIN

REACTIONS (6)
  - DYSPEPSIA [None]
  - ABDOMINAL PAIN UPPER [None]
  - CHOLECYSTITIS CHRONIC [None]
  - PROCEDURAL PAIN [None]
  - GALLBLADDER DISORDER [None]
  - CHOLELITHIASIS [None]
